FAERS Safety Report 10682858 (Version 1)
Quarter: 2014Q4

REPORT INFORMATION
  Report Type: Other
  Country: IT (occurrence: IT)
  Receive Date: 20141230
  Receipt Date: 20141230
  Transmission Date: 20150529
  Serious: Yes (Other)
  Sender: FDA-Public Use
  Company Number: IT-MYLANLABS-2014M1015391

PATIENT

DRUGS (2)
  1. CEFTRIAXONE DISODIUM [Suspect]
     Active Substance: CEFTRIAXONE
     Indication: PNEUMONITIS
     Dosage: 2 DF DAILY
     Route: 030
     Dates: start: 20141021, end: 20141024
  2. CLARITHROMYCIN. [Suspect]
     Active Substance: CLARITHROMYCIN
     Indication: PNEUMONITIS
     Dosage: 1000 MG DAILY
     Route: 048
     Dates: start: 20141021, end: 20141024

REACTIONS (2)
  - Effusion [Not Recovered/Not Resolved]
  - Transaminases increased [Not Recovered/Not Resolved]

NARRATIVE: CASE EVENT DATE: 20141023
